FAERS Safety Report 12644443 (Version 2)
Quarter: 2016Q3

REPORT INFORMATION
  Report Type: Spontaneous
  Country: VE (occurrence: VE)
  Receive Date: 20160811
  Receipt Date: 20160816
  Transmission Date: 20161109
  Serious: Yes (Hospitalization, Other)
  Sender: FDA-Public Use
  Company Number: PHHY2016VE109832

PATIENT
  Sex: Female

DRUGS (6)
  1. TRILEPTAL [Suspect]
     Active Substance: OXCARBAZEPINE
     Indication: ADDISON^S DISEASE
     Dosage: 600 MG, QD (STRENGTH: 600 MG)
     Route: 048
  2. TRILEPTAL [Suspect]
     Active Substance: OXCARBAZEPINE
     Indication: CEREBRAL DISORDER
     Dosage: UNK UNK, QD
     Route: 048
     Dates: start: 2016
  3. TRILEPTAL [Suspect]
     Active Substance: OXCARBAZEPINE
     Indication: SEIZURE
     Dosage: 42.5 CM3, QD (15 CC IN THE MORNING, 12.5 CC AT MIDDAY AND 15 CC AT NIGHT)
     Route: 048
  4. TRILEPTAL [Suspect]
     Active Substance: OXCARBAZEPINE
     Indication: SEIZURE
     Dosage: QD STRENGTH: 300 MG
     Route: 048
  5. TRILEPTAL [Suspect]
     Active Substance: OXCARBAZEPINE
     Indication: CEREBRAL DISORDER
     Dosage: 2550 MG, QD (900 MG IN THE MORNING, 750 MG AT 2 P.M AND 900 MG AT 9 P.M)
     Route: 048
  6. TRILEPTAL [Suspect]
     Active Substance: OXCARBAZEPINE
     Indication: ADDISON^S DISEASE

REACTIONS (9)
  - Abasia [Unknown]
  - Systemic lupus erythematosus [Unknown]
  - Malaise [Unknown]
  - Renal disorder [Unknown]
  - Nephrolithiasis [Recovered/Resolved]
  - Hypokinesia [Unknown]
  - Seizure [Unknown]
  - Hypertension [Unknown]
  - Product use issue [Unknown]
